FAERS Safety Report 17562412 (Version 12)
Quarter: 2022Q4

REPORT INFORMATION
  Report Type: Report from Study
  Country: CA (occurrence: CA)
  Receive Date: 20200319
  Receipt Date: 20221121
  Transmission Date: 20230113
  Serious: Yes (Death, Life-Threatening, Hospitalization, Other)
  Sender: FDA-Public Use
  Company Number: CA-BOEHRINGERINGELHEIM-2020-BI-000736

PATIENT
  Age: 80 Year
  Sex: Female

DRUGS (4)
  1. OFEV [Suspect]
     Active Substance: NINTEDANIB
     Indication: Idiopathic pulmonary fibrosis
     Route: 048
     Dates: start: 20191126
  2. OFEV [Suspect]
     Active Substance: NINTEDANIB
     Route: 048
     Dates: start: 20200101, end: 20200123
  3. OFEV [Suspect]
     Active Substance: NINTEDANIB
     Route: 048
  4. METAMUCIL [Concomitant]
     Active Substance: PLANTAGO SEED
     Indication: Product used for unknown indication

REACTIONS (19)
  - Death [Fatal]
  - Intestinal perforation [Not Recovered/Not Resolved]
  - Diverticular perforation [Not Recovered/Not Resolved]
  - Colonic abscess [Not Recovered/Not Resolved]
  - Clostridium difficile infection [Not Recovered/Not Resolved]
  - Abdominal pain [Not Recovered/Not Resolved]
  - Diarrhoea [Recovering/Resolving]
  - Abdominal discomfort [Not Recovered/Not Resolved]
  - Abdominal pain upper [Recovered/Resolved]
  - Decreased appetite [Not Recovered/Not Resolved]
  - Asthenia [Not Recovered/Not Resolved]
  - Fatigue [Not Recovered/Not Resolved]
  - Dyspnoea [Unknown]
  - Constipation [Not Recovered/Not Resolved]
  - Abdominal pain upper [Not Recovered/Not Resolved]
  - Nausea [Not Recovered/Not Resolved]
  - Dyspnoea exertional [Not Recovered/Not Resolved]
  - Pain [Unknown]
  - Feeding disorder [Unknown]

NARRATIVE: CASE EVENT DATE: 20221117
